FAERS Safety Report 13513512 (Version 1)
Quarter: 2017Q2

REPORT INFORMATION
  Report Type: Spontaneous
  Country: GB (occurrence: GB)
  Receive Date: 20170504
  Receipt Date: 20170504
  Transmission Date: 20170830
  Serious: Yes (Hospitalization, Disabling, Other)
  Sender: FDA-Public Use
  Company Number: PHHY2017GB062080

PATIENT
  Age: 48 Year
  Sex: Female
  Weight: 70.76 kg

DRUGS (1)
  1. TEGRETOL [Suspect]
     Active Substance: CARBAMAZEPINE
     Indication: BURNING MOUTH SYNDROME
     Dosage: 200 MG, UNK
     Route: 048
     Dates: start: 20170301, end: 20170408

REACTIONS (3)
  - Burning sensation [Unknown]
  - Insomnia [Unknown]
  - Urticaria chronic [Not Recovered/Not Resolved]

NARRATIVE: CASE EVENT DATE: 20170404
